FAERS Safety Report 9277109 (Version 1)
Quarter: 2013Q2

REPORT INFORMATION
  Report Type: Spontaneous
  Country: US (occurrence: US)
  Receive Date: 20130507
  Receipt Date: 20130507
  Transmission Date: 20140414
  Serious: No
  Sender: FDA-Public Use
  Company Number: US-ASTRAZENECA-2013SE24930

PATIENT
  Age: 41 Year
  Sex: Female

DRUGS (6)
  1. SEROQUEL XR [Suspect]
     Indication: BIPOLAR DISORDER
     Dosage: 300 HS
     Route: 048
  2. PROSAM [Concomitant]
  3. ADDERALL [Concomitant]
  4. KLONOPIN [Concomitant]
  5. PROZAC [Concomitant]
  6. TRILEPTAL [Concomitant]

REACTIONS (1)
  - Skin odour abnormal [Unknown]
